FAERS Safety Report 9012528 (Version 1)
Quarter: 2013Q1

REPORT INFORMATION
  Report Type: Report from Study
  Country: US (occurrence: US)
  Receive Date: 20130114
  Receipt Date: 20130114
  Transmission Date: 20140127
  Serious: Yes (Hospitalization)
  Sender: FDA-Public Use
  Company Number: US-009507513-1301USA003909

PATIENT
  Age: 61 Year
  Sex: Female
  Weight: 77.1 kg

DRUGS (4)
  1. VORINOSTAT [Suspect]
     Indication: LUNG NEOPLASM MALIGNANT
     Dosage: UNK MG, UNK
     Route: 048
     Dates: start: 20121210, end: 20121212
  2. VORINOSTAT [Suspect]
     Dosage: UNK MG, UNK
     Route: 048
     Dates: start: 20121217, end: 20121219
  3. VORINOSTAT [Suspect]
     Dosage: UNK
     Route: 048
     Dates: start: 20121224, end: 20121226
  4. PACLITAXEL [Suspect]
     Indication: LUNG NEOPLASM MALIGNANT
     Dosage: 175MG/M2
     Route: 042
     Dates: start: 20121226, end: 20121226

REACTIONS (1)
  - Renal failure acute [Not Recovered/Not Resolved]
